FAERS Safety Report 9782414 (Version 1)
Quarter: 2013Q4

REPORT INFORMATION
  Report Type: Spontaneous
  Country: AR (occurrence: AR)
  Receive Date: 20131226
  Receipt Date: 20131226
  Transmission Date: 20140711
  Serious: Yes (Other)
  Sender: FDA-Public Use
  Company Number: PHHY2013AR150962

PATIENT
  Sex: 0

DRUGS (2)
  1. SANDOSTATIN LAR [Suspect]
     Dosage: UNK UKN, UNK
     Route: 065
  2. SANDOSTATIN [Suspect]
     Dosage: UNK UKN, UNK
     Route: 065

REACTIONS (6)
  - Lipoma [Unknown]
  - Carcinoid tumour of the pancreas [Unknown]
  - Hepatic neoplasm [Unknown]
  - Diarrhoea [Unknown]
  - Syringe issue [Unknown]
  - Underdose [Unknown]
